FAERS Safety Report 4972649-9 (Version None)
Quarter: 2006Q1

REPORT INFORMATION
  Report Type: 
  Country: None (occurrence: None)
  Receive Date: 20060216
  Receipt Date: 20051027
  Transmission Date: 20060701
  Serious: Yes (Death, Hospitalization, Other)
  Sender: FDA-Public Use
  Company Number: 200510IM000681

PATIENT
  Age: 74 Year
  Sex: Male
  Weight: 94.8018 kg

DRUGS (12)
  1. BLINDED THERAPY (INTERFERON GAMMA-1B) [Suspect]
     Indication: IDIOPATHIC PULMONARY FIBROSIS
     Dosage: 200 UG, TIW, SUBCUTANEOUS
     Route: 058
     Dates: start: 20050901
  2. PREDNISONE TAB [Concomitant]
  3. B12 [Concomitant]
  4. ACETAMINOPHEN [Concomitant]
  5. ETODOLAC [Concomitant]
  6. ASPIRIN [Concomitant]
  7. TYLENOL (CAPLET) [Concomitant]
  8. OXYGEN [Concomitant]
  9. METOPROLOL TARTRATE [Concomitant]
  10. UNIVASE [Concomitant]
  11. FOLIC ACID [Concomitant]
  12. LIPITOR [Concomitant]

REACTIONS (1)
  - RESPIRATORY FAILURE [None]
